FAERS Safety Report 23874916 (Version 1)
Quarter: 2024Q2

REPORT INFORMATION
  Report Type: Report from Study
  Country: US (occurrence: US)
  Receive Date: 20240520
  Receipt Date: 20240520
  Transmission Date: 20240716
  Serious: Yes (Hospitalization)
  Sender: FDA-Public Use
  Company Number: US-Eisai-EC-2024-164603

PATIENT
  Age: 66 Year
  Sex: Female

DRUGS (2)
  1. LENVIMA [Suspect]
     Active Substance: LENVATINIB
     Indication: Hepatic cancer
     Dosage: PULLED BACK THAT TO 1-2 DOSES
     Route: 048
     Dates: start: 20240422, end: 20240424
  2. LENVIMA [Suspect]
     Active Substance: LENVATINIB
     Route: 048
     Dates: start: 20240425

REACTIONS (6)
  - Nausea [Not Recovered/Not Resolved]
  - Decreased appetite [Unknown]
  - Dysphonia [Unknown]
  - Cough [Unknown]
  - Hepatic encephalopathy [Unknown]
  - Diarrhoea [Unknown]

NARRATIVE: CASE EVENT DATE: 20240401
